FAERS Safety Report 5153969-4 (Version None)
Quarter: 2006Q4

REPORT INFORMATION
  Report Type: 
  Country: None (occurrence: None)
  Receive Date: 20061120
  Receipt Date: 20060831
  Transmission Date: 20070319
  Serious: Yes (Other)
  Sender: FDA-Public Use
  Company Number: BR-AVENTIS-200619483GDDC

PATIENT
  Age: 47 Year
  Sex: Female
  Weight: 69 kg

DRUGS (9)
  1. FLAGYL [Suspect]
     Route: 048
     Dates: start: 20060830
  2. BESEROL                            /00112701/ [Concomitant]
     Dates: start: 20060101
  3. ACETAMINOPHEN [Concomitant]
     Dosage: DOSE: WHEN NECESSARY
  4. CORTICOSTEROIDS [Concomitant]
  5. UNKNOWN DRUG [Concomitant]
     Indication: FIBROMYALGIA
     Route: 048
     Dates: start: 20060101, end: 20060713
  6. FENOFIBRATE [Concomitant]
     Indication: BLOOD CHOLESTEROL
     Route: 048
     Dates: start: 20060501, end: 20060713
  7. FENOFIBRATE [Concomitant]
     Indication: BLOOD TRIGLYCERIDES
     Route: 048
     Dates: start: 20060501, end: 20060713
  8. DIETHYLPROPION HCL [Concomitant]
     Indication: WEIGHT CONTROL
     Route: 048
     Dates: start: 20050101, end: 20060713
  9. UNKNOWN DRUG [Concomitant]
     Indication: WEIGHT CONTROL
     Route: 048
     Dates: start: 20050101, end: 20060713

REACTIONS (5)
  - ABDOMINAL PAIN [None]
  - ABORTION SPONTANEOUS [None]
  - DRUG EXPOSURE DURING PREGNANCY [None]
  - HEADACHE [None]
  - VAGINAL HAEMORRHAGE [None]
